FAERS Safety Report 5488747-X (Version None)
Quarter: 2007Q4

REPORT INFORMATION
  Report Type: 
  Country: None (occurrence: None)
  Receive Date: 20071017
  Receipt Date: 20070917
  Transmission Date: 20080405
  Serious: Yes (Other)
  Sender: FDA-Public Use
  Company Number: AU-PFIZER INC-2007015291

PATIENT
  Sex: Male

DRUGS (1)
  1. TORCETRAPIB/ATORVASTATIN [Suspect]
     Indication: CORONARY ARTERY DISEASE
     Dosage: TEXT:60 MG/10 MG
     Route: 048
     Dates: start: 20050926, end: 20051004

REACTIONS (1)
  - SQUAMOUS CELL CARCINOMA [None]
